FAERS Safety Report 5028965-8 (Version None)
Quarter: 2006Q2

REPORT INFORMATION
  Report Type: 
  Country: None (occurrence: None)
  Receive Date: 20060619
  Receipt Date: 20040531
  Transmission Date: 20061013
  Serious: Yes (Death, Other)
  Sender: FDA-Public Use
  Company Number: DK-BRISTOL-MYERS SQUIBB COMPANY-13353156

PATIENT
  Age: 48 Year
  Sex: Female

DRUGS (2)
  1. STAVUDINE [Suspect]
  2. LAMIVUDINE [Suspect]

REACTIONS (3)
  - DISSEMINATED INTRAVASCULAR COAGULATION [None]
  - PANCREATITIS [None]
  - SYSTEMIC INFLAMMATORY RESPONSE SYNDROME [None]
